FAERS Safety Report 4463327-3 (Version None)
Quarter: 2004Q3

REPORT INFORMATION
  Report Type: 
  Country: None (occurrence: None)
  Receive Date: 20040928
  Receipt Date: 20040915
  Transmission Date: 20050211
  Serious: Yes (Other)
  Sender: FDA-Public Use
  Company Number: 2004050993

PATIENT
  Sex: Male

DRUGS (5)
  1. LIPITOR [Suspect]
     Indication: ILL-DEFINED DISORDER
     Dosage: 20 MG
  2. LISINOPRIL [Suspect]
     Indication: ILL-DEFINED DISORDER
     Dosage: 20 MG (20 MG, 1 IN 1 D), ORAL
     Route: 048
  3. EZETIMIBE (EZETIMIBE) [Suspect]
     Indication: ILL-DEFINED DISORDER
  4. ALL OTHER NON-THERAPEUTIC PRODUCTS (ALL OTHER NON-THERAPEUTIC PRODUCTS [Suspect]
     Indication: ILL-DEFINED DISORDER
     Dosage: ORAL
     Route: 048
  5. ALENDRONATE SODIUM [Concomitant]

REACTIONS (1)
  - BLOOD POTASSIUM INCREASED [None]
